FAERS Safety Report 23065921 (Version 2)
Quarter: 2023Q4

REPORT INFORMATION
  Report Type: Report from Study
  Country: EG (occurrence: EG)
  Receive Date: 20231014
  Receipt Date: 20231128
  Transmission Date: 20240110
  Serious: Yes (Other)
  Sender: FDA-Public Use
  Company Number: EG-002147023-NVSC2023EG219412

PATIENT
  Age: 46 Year
  Sex: Male

DRUGS (5)
  1. ENTRESTO [Suspect]
     Active Substance: SACUBITRIL\VALSARTAN
     Indication: Left ventricular failure
     Dosage: 50 MG (1/2 TAB), BID (SERIAL NUMBER:10546656526161)
     Route: 048
     Dates: start: 202204, end: 202207
  2. ENTRESTO [Suspect]
     Active Substance: SACUBITRIL\VALSARTAN
     Dosage: 50 MG (1/2 TAB), BID
     Route: 048
     Dates: start: 202207
  3. GLIPTUS [Concomitant]
     Indication: Diabetes mellitus
     Dosage: 1 DOSAGE FORM, QD (LONG TIME AGO)
     Route: 048
  4. JUSPRIN [Concomitant]
     Indication: Anticoagulant therapy
     Dosage: 1 DOSAGE FORM, QD (A YEAR AGO)
     Route: 048
  5. RAMIPRIL [Concomitant]
     Active Substance: RAMIPRIL
     Indication: Hypertension
     Dosage: 1 DOSAGE FORM, BID (STOPPED A YEAR AGO)
     Route: 048

REACTIONS (8)
  - Tachycardia [Recovered/Resolved]
  - Fatigue [Recovered/Resolved]
  - Tachycardia [Recovering/Resolving]
  - Fatigue [Recovering/Resolving]
  - Glycosylated haemoglobin increased [Unknown]
  - Hyperlipidaemia [Unknown]
  - Blood triglycerides increased [Unknown]
  - Wrong technique in product usage process [Unknown]

NARRATIVE: CASE EVENT DATE: 20220401
